FAERS Safety Report 13028444 (Version 1)
Quarter: 2016Q4

REPORT INFORMATION
  Report Type: Spontaneous
  Country: BA (occurrence: BA)
  Receive Date: 20161214
  Receipt Date: 20161214
  Transmission Date: 20170207
  Serious: Yes (Hospitalization, Other)
  Sender: FDA-Public Use
  Company Number: BA-BAYER-2016-232021

PATIENT
  Age: 76 Year
  Sex: Female

DRUGS (4)
  1. ASPIRIN PROTECT 100 MG [Suspect]
     Active Substance: ASPIRIN
     Dosage: UNK
  2. MONAZOL [Concomitant]
     Active Substance: SERTACONAZOLE NITRATE
  3. LORISTA [Concomitant]
     Active Substance: LOSARTAN POTASSIUM
  4. CLOPIDOGREL [Concomitant]
     Active Substance: CLOPIDOGREL BISULFATE

REACTIONS (9)
  - Palpitations [None]
  - Asphyxia [None]
  - Peripheral swelling [None]
  - Hypertensive cardiomyopathy [None]
  - Chest discomfort [None]
  - Arrhythmia supraventricular [None]
  - Atrial thrombosis [None]
  - Atrial fibrillation [None]
  - Mitral valve incompetence [None]
